FAERS Safety Report 8336818-2 (Version None)
Quarter: 2012Q2

REPORT INFORMATION
  Report Type: 
  Country: None (occurrence: None)
  Receive Date: 20120504
  Receipt Date: 20120501
  Transmission Date: 20120825
  Serious: Yes (Other)
  Sender: FDA-Public Use
  Company Number: US-PFIZER INC-2012107399

PATIENT
  Sex: Female
  Weight: 68.027 kg

DRUGS (2)
  1. EFFEXOR [Suspect]
     Indication: DEPRESSION
     Dosage: UNK
     Route: 048
  2. EFFEXOR [Suspect]
     Dosage: 150 MG, DAILY
     Route: 048

REACTIONS (1)
  - BREAST CANCER [None]
